FAERS Safety Report 24374264 (Version 3)
Quarter: 2024Q4

REPORT INFORMATION
  Report Type: Spontaneous
  Country: US (occurrence: US)
  Receive Date: 20240927
  Receipt Date: 20241015
  Transmission Date: 20250114
  Serious: No
  Sender: PFIZER
  Company Number: US-PFIZER INC-PV202400124859

PATIENT
  Age: 67 Year
  Sex: Female

DRUGS (3)
  1. TUKYSA [Interacting]
     Active Substance: TUCATINIB
     Dosage: 50MG, 6 TABLETS TWICE A DAY.
  2. PLAVIX [Interacting]
     Active Substance: CLOPIDOGREL BISULFATE
     Dosage: UNK
  3. TRAMADOL [Interacting]
     Active Substance: TRAMADOL
     Dosage: UNK

REACTIONS (1)
  - Drug interaction [Unknown]
